FAERS Safety Report 8646445 (Version 3)
Quarter: 2012Q4

REPORT INFORMATION
  Report Type: 
  Country: DE (occurrence: DE)
  Receive Date: 20120702
  Receipt Date: 20121011
  Transmission Date: 20130627
  Serious: Yes (Hospitalization, Other)
  Sender: FDA-Public Use
  Company Number: DE-BAXTER-2012BAX009487

PATIENT
  Age: 69 Year
  Sex: Female

DRUGS (2)
  1. KIOVIG [Suspect]
     Indication: GUILLAIN-BARRE SYNDROME
     Route: 042
     Dates: start: 20120612, end: 20120616
  2. KIOVIG [Suspect]
     Route: 042
     Dates: start: 20120612, end: 20120616

REACTIONS (3)
  - Haemoglobin decreased [Recovered/Resolved]
  - Anti-erythrocyte antibody positive [Unknown]
  - Coombs direct test positive [Unknown]
